FAERS Safety Report 6839493-9 (Version None)
Quarter: 2010Q3

REPORT INFORMATION
  Report Type: 
  Country: None (occurrence: None)
  Receive Date: 20100714
  Receipt Date: 20090914
  Transmission Date: 20110219
  Serious: No
  Sender: FDA-Public Use
  Company Number: A0807703A

PATIENT
  Age: 7 Year
  Sex: Female

DRUGS (1)
  1. FLOVENT [Suspect]
     Route: 055

REACTIONS (2)
  - DRUG DISPENSING ERROR [None]
  - MEDICATION ERROR [None]
